FAERS Safety Report 14513717 (Version 2)
Quarter: 2019Q1

REPORT INFORMATION
  Report Type: Spontaneous
  Country: US (occurrence: US)
  Receive Date: 20180209
  Receipt Date: 20190115
  Transmission Date: 20190417
  Serious: No
  Sender: FDA-Public Use
  Company Number: US-ALLERGAN-1765195US

PATIENT
  Sex: Female

DRUGS (4)
  1. ZADITOR [Concomitant]
     Active Substance: KETOTIFEN FUMARATE
     Indication: DRY EYE
     Route: 047
  2. NAPHCON [Concomitant]
     Active Substance: NAPHAZOLINE HYDROCHLORIDE
     Indication: DRY EYE
     Route: 047
  3. RESTASIS [Suspect]
     Active Substance: CYCLOSPORINE
     Indication: DRY EYE
     Dosage: 2 GTT, BID
     Route: 047
  4. SYSTANE (HYPROMELLOSE 2910 (4000 MPA.S)) [Concomitant]
     Active Substance: HYPROMELLOSE 2910 (4000 MPA.S)
     Indication: DRY EYE
     Dosage: UNK UNK, PRN
     Route: 047

REACTIONS (3)
  - Cataract [Recovered/Resolved]
  - Incorrect dose administered [Unknown]
  - Product use complaint [Unknown]
